FAERS Safety Report 21471042 (Version 1)
Quarter: 2022Q4

REPORT INFORMATION
  Report Type: Spontaneous
  Country: US (occurrence: None)
  Receive Date: 20221017
  Receipt Date: 20221017
  Transmission Date: 20230113
  Serious: Yes (Hospitalization)
  Sender: FDA-Public Use
  Company Number: None

PATIENT
  Age: 62 Year
  Sex: Male
  Weight: 134.2 kg

DRUGS (2)
  1. VANCOMYCIN [Suspect]
     Active Substance: VANCOMYCIN
     Indication: Device related infection
     Dosage: FREQUENCY : TWICE A DAY;?
     Route: 042
     Dates: start: 20220922, end: 20221007
  2. VANCOMYCIN [Suspect]
     Active Substance: VANCOMYCIN
     Indication: Device related infection
     Dosage: FREQUENCY : DAILY;?
     Route: 042
     Dates: start: 20221007, end: 20221010

REACTIONS (6)
  - Pyrexia [None]
  - Blood creatinine increased [None]
  - Syncope [None]
  - Vancomycin infusion reaction [None]
  - Acute kidney injury [None]
  - Chronic kidney disease [None]

NARRATIVE: CASE EVENT DATE: 20221010
